FAERS Safety Report 5051685-0 (Version None)
Quarter: 2006Q3

REPORT INFORMATION
  Report Type: 
  Country: None (occurrence: None)
  Receive Date: 20060714
  Receipt Date: 20060705
  Transmission Date: 20061208
  Serious: Yes (Other)
  Sender: FDA-Public Use
  Company Number: DE-BRISTOL-MYERS SQUIBB COMPANY-13435813

PATIENT
  Age: 47 Year
  Sex: Female
  Weight: 87 kg

DRUGS (1)
  1. CISPLATIN [Suspect]
     Indication: CERVIX CARCINOMA
     Route: 042
     Dates: start: 20060523, end: 20060523

REACTIONS (3)
  - C-REACTIVE PROTEIN INCREASED [None]
  - NEUTROPENIA [None]
  - URINARY TRACT INFECTION [None]
